FAERS Safety Report 10251417 (Version 1)
Quarter: 2014Q2

REPORT INFORMATION
  Report Type: Spontaneous
  Country: FR (occurrence: FR)
  Receive Date: 20140623
  Receipt Date: 20140623
  Transmission Date: 20141212
  Serious: Yes (Hospitalization)
  Sender: FDA-Public Use
  Company Number: FR-ROCHE-1422137

PATIENT
  Age: 54 Year
  Sex: Female

DRUGS (5)
  1. RIVOTRIL [Suspect]
     Indication: PRODUCT USED FOR UNKNOWN INDICATION
     Route: 042
     Dates: start: 20140322, end: 20140326
  2. KEPPRA [Concomitant]
     Dosage: IN THE MORNING
     Route: 048
     Dates: start: 20140322, end: 20140323
  3. PARACETAMOL [Concomitant]
     Dosage: THREE TIMES A DAY (UNKNOWN LABORATORY)
     Route: 042
     Dates: start: 20140322, end: 20140326
  4. TEMESTA (FRANCE) [Concomitant]
     Dosage: IN THE EVENING
     Route: 048
     Dates: start: 20140323, end: 20140326
  5. INEXIUM [Concomitant]
     Dosage: IN THE EVENING
     Route: 048

REACTIONS (2)
  - Jaundice [Recovered/Resolved]
  - Encephalopathy [Recovered/Resolved]
